FAERS Safety Report 5424458-4 (Version None)
Quarter: 2007Q3

REPORT INFORMATION
  Report Type: 
  Country: None (occurrence: None)
  Receive Date: 20070823
  Receipt Date: 20070816
  Transmission Date: 20080115
  Serious: Yes (Hospitalization, Other)
  Sender: FDA-Public Use
  Company Number: JP-MERCK-0708USA04087

PATIENT
  Age: 63 Year
  Sex: Female

DRUGS (3)
  1. PEPCID RPD [Suspect]
     Indication: ABDOMINAL PAIN UPPER
     Route: 048
     Dates: start: 20070720, end: 20070701
  2. OMEPRAZOLE [Suspect]
     Indication: ABDOMINAL PAIN UPPER
     Route: 065
     Dates: start: 20070701, end: 20070801
  3. [THERAPY UNSPECIFIED] [Concomitant]
     Route: 065
     Dates: end: 20070801

REACTIONS (2)
  - HEPATITIS ACUTE [None]
  - PLATELET COUNT DECREASED [None]
